FAERS Safety Report 19451230 (Version 5)
Quarter: 2023Q2

REPORT INFORMATION
  Report Type: Spontaneous
  Country: FR (occurrence: FR)
  Receive Date: 20210623
  Receipt Date: 20230609
  Transmission Date: 20230721
  Serious: Yes (Life-Threatening)
  Sender: FDA-Public Use
  Company Number: None

PATIENT
  Age: 71 Year
  Sex: Male
  Weight: 76 kg

DRUGS (8)
  1. NASONEX [Suspect]
     Active Substance: MOMETASONE FUROATE
     Dosage: 100 MG, QD
     Route: 048
     Dates: start: 2012, end: 20210521
  2. MOMETASONE FUROATE [Suspect]
     Active Substance: MOMETASONE FUROATE
     Dosage: 100 MG, QD
     Route: 048
     Dates: start: 2012, end: 20210521
  3. MOMETASONE FUROATE [Suspect]
     Active Substance: MOMETASONE FUROATE
     Dosage: UNK
  4. MOMETASONE FUROATE [Suspect]
     Active Substance: MOMETASONE FUROATE
     Dosage: UNK
  5. EBASTINE [Suspect]
     Active Substance: EBASTINE
     Dosage: 1 DF, QD
     Route: 048
     Dates: start: 2012, end: 20210521
  6. ALUMINUM OXIDE [Suspect]
     Active Substance: ALUMINUM OXIDE
     Dosage: 3 DF, QD (FORMULATION REPORTED AS DRINKABLE SUSPENSION SACHET-DOSE)
     Route: 048
     Dates: start: 20200207, end: 20210521
  7. COMIRNATY [Suspect]
     Active Substance: TOZINAMERAN
     Indication: COVID-19 immunisation
     Dosage: 2 DF, UNK (FORMULATION: MRNA ENCODING SARS-COV-2 VIRAL SPIKE PROTEIN)
     Route: 030
     Dates: start: 20210409, end: 20210506
  8. IRBESARTAN [Suspect]
     Active Substance: IRBESARTAN
     Dosage: 1 DF, QD
     Route: 048
     Dates: start: 2012

REACTIONS (1)
  - Cerebral venous thrombosis [Unknown]

NARRATIVE: CASE EVENT DATE: 20210519
